FAERS Safety Report 7543466-0 (Version None)
Quarter: 2011Q2

REPORT INFORMATION
  Report Type: 
  Country: None (occurrence: None)
  Receive Date: 20110613
  Receipt Date: 20110606
  Transmission Date: 20111010
  Serious: Yes (Hospitalization)
  Sender: FDA-Public Use
  Company Number: PHHO2011US09735

PATIENT
  Sex: Male
  Weight: 76.6 kg

DRUGS (15)
  1. COMPAZINE [Concomitant]
  2. MIRALAX [Concomitant]
  3. AFINITOR [Suspect]
     Indication: NEOPLASM
     Dosage: 5 MG, EVERY OTHER DAY
     Route: 048
     Dates: start: 20110113, end: 20110518
  4. TAMSULOSIN HCL [Concomitant]
  5. MAGNESIUM OXIDE [Concomitant]
  6. COLACE [Concomitant]
  7. PAZOPANIB [Concomitant]
     Indication: BLADDER CANCER
     Dosage: 400 MG, DAILY
     Route: 048
     Dates: start: 20110113, end: 20110518
  8. OXYCONTIN [Concomitant]
  9. CALCIUM CARBONATE [Concomitant]
  10. ATIVAN [Concomitant]
  11. SENNA-MINT WAF [Concomitant]
  12. OXYCODONE [Concomitant]
  13. LOVENOX [Concomitant]
  14. METOPROLOL SUCCINATE [Concomitant]
  15. GABAPENTIN [Concomitant]

REACTIONS (2)
  - PYREXIA [None]
  - MENTAL STATUS CHANGES [None]
